FAERS Safety Report 5536730-8 (Version None)
Quarter: 2007Q4

REPORT INFORMATION
  Report Type: 
  Country: None (occurrence: None)
  Receive Date: 20071206
  Receipt Date: 20070507
  Transmission Date: 20080405
  Serious: Yes (Hospitalization)
  Sender: FDA-Public Use
  Company Number: US-AMGEN-STX196949

PATIENT
  Sex: Male

DRUGS (27)
  1. ENBREL [Suspect]
     Indication: RHEUMATOID ARTHRITIS
     Route: 058
     Dates: start: 20060824, end: 20061030
  2. METHOTREXATE [Concomitant]
     Dates: start: 20060615, end: 20060701
  3. METHOTREXATE [Concomitant]
     Dates: start: 20060727, end: 20060801
  4. METHOTREXATE [Concomitant]
     Dates: start: 20060824
  5. ECOTRIN [Concomitant]
  6. VITAMIN CAP [Concomitant]
  7. VITAMIN E [Concomitant]
  8. CALCIUM [Concomitant]
  9. DARVOCET [Concomitant]
  10. PSYLLIUM [Concomitant]
  11. NORVASC [Concomitant]
  12. FOSAMAX [Concomitant]
  13. PLAVIX [Concomitant]
  14. PRANDIN [Concomitant]
  15. FISH OIL [Concomitant]
     Dates: end: 20060801
  16. FISH OIL [Concomitant]
     Dates: start: 20060824
  17. AMARYL [Concomitant]
     Dates: end: 20060701
  18. AMARYL [Concomitant]
     Dates: start: 20060727
  19. ACIPHEX [Concomitant]
  20. CARDURA [Concomitant]
  21. ZOCOR [Concomitant]
  22. GABAPENTIN [Concomitant]
  23. XANAX [Concomitant]
  24. CLINDAMYCIN HCL [Concomitant]
  25. NORTEC [Concomitant]
  26. FOLIC ACID [Concomitant]
  27. PROCRIT [Concomitant]

REACTIONS (2)
  - CEREBROVASCULAR ACCIDENT [None]
  - PNEUMONIA [None]
